FAERS Safety Report 8854818 (Version 2)
Quarter: 2012Q4

REPORT INFORMATION
  Report Type: 
  Country: MX (occurrence: MX)
  Receive Date: 20121023
  Receipt Date: 20121030
  Transmission Date: 20130627
  Serious: Yes (Hospitalization, Other)
  Sender: FDA-Public Use
  Company Number: PHHY2012MX094294

PATIENT
  Age: 59 Year
  Sex: Female

DRUGS (1)
  1. EXFORGE [Suspect]
     Indication: HYPERTENSION
     Dosage: 1 tablet (160/5 mg) per day
     Dates: start: 20120506, end: 20121012

REACTIONS (10)
  - Gastric cancer [Not Recovered/Not Resolved]
  - Ascites [Not Recovered/Not Resolved]
  - Pulmonary oedema [Not Recovered/Not Resolved]
  - Gallbladder disorder [Recovered/Resolved]
  - Renal impairment [Recovering/Resolving]
  - Anuria [Recovering/Resolving]
  - Diarrhoea [Recovered/Resolved]
  - Vomiting [Recovered/Resolved]
  - Cough [Not Recovered/Not Resolved]
  - Hypotension [Unknown]
